FAERS Safety Report 9445919 (Version 2)
Quarter: 2013Q3

REPORT INFORMATION
  Report Type: Spontaneous
  Country: None (occurrence: US)
  Receive Date: 20130807
  Receipt Date: 20130815
  Transmission Date: 20140515
  Serious: Yes (Other)
  Sender: FDA-Public Use
  Company Number: US-ABBOTT-13P-163-1121403-00

PATIENT
  Age: 62 Year
  Sex: Female
  Weight: 56.75 kg

DRUGS (2)
  1. SYNTHROID [Suspect]
     Indication: HYPOTHYROIDISM
     Dates: start: 201106, end: 201305
  2. ARMOUR THYROID [Suspect]
     Indication: PRODUCT USED FOR UNKNOWN INDICATION

REACTIONS (8)
  - Thyroid cancer [Recovered/Resolved]
  - Blood pressure fluctuation [Recovered/Resolved]
  - Hypersensitivity [Unknown]
  - Dyspnoea [Recovering/Resolving]
  - Drug intolerance [Unknown]
  - Blood thyroid stimulating hormone abnormal [Unknown]
  - Anxiety [Recovering/Resolving]
  - Asthma exercise induced [Unknown]
